FAERS Safety Report 26059264 (Version 1)
Quarter: 2025Q4

REPORT INFORMATION
  Report Type: Spontaneous
  Country: US (occurrence: None)
  Receive Date: 20251117
  Receipt Date: 20251117
  Transmission Date: 20260118
  Serious: Yes (Hospitalization)
  Sender: FDA-CTU
  Company Number: None

PATIENT
  Age: 67 Year
  Sex: Female
  Weight: 50.35 kg

DRUGS (30)
  1. SECUKINUMAB [Suspect]
     Active Substance: SECUKINUMAB
     Dosage: OTHER ROUTE : INTO A VEIN;?
     Route: 050
     Dates: start: 20240702, end: 20251014
  2. TYLENOL [Concomitant]
     Active Substance: ACETAMINOPHEN
  3. Polyphenol Nutrients multi-vitamin [Concomitant]
  4. ARGININE [Concomitant]
     Active Substance: ARGININE
  5. MAGNESIUM MALATE [Concomitant]
     Active Substance: MAGNESIUM MALATE
  6. Lipitor OX [Concomitant]
  7. Promega fish oil [Concomitant]
  8. ALLEGRA [Concomitant]
     Active Substance: FEXOFENADINE HYDROCHLORIDE
  9. Ubiquinol\ CoQ10 [Concomitant]
  10. DIM [Concomitant]
  11. Buffered Vitamin C [Concomitant]
  12. CALCIUM [Concomitant]
     Active Substance: CALCIUM
  13. LACTOFERRIN [Concomitant]
     Active Substance: LACTOFERRIN
  14. NAC [Concomitant]
  15. MAGNESIUM GLYCINATE [Concomitant]
     Active Substance: MAGNESIUM GLYCINATE
  16. CELECOXIB [Concomitant]
     Active Substance: CELECOXIB
  17. Methenamine Hippurate. [Concomitant]
  18. ROSUVASTATIN [Concomitant]
     Active Substance: ROSUVASTATIN
  19. Progesterone Micronized [Concomitant]
  20. Testosterone Carbohol [Concomitant]
  21. ESTRADIOL [Concomitant]
     Active Substance: ESTRADIOL
  22. Estradiol Vaginal Cream. [Concomitant]
  23. BUDESONIDE [Concomitant]
     Active Substance: BUDESONIDE
  24. FLAGYL [Concomitant]
     Active Substance: METRONIDAZOLE\METRONIDAZOLE HYDROCHLORIDE
  25. Rocephn [Concomitant]
  26. PROTONIX [Concomitant]
     Active Substance: PANTOPRAZOLE SODIUM
  27. BENTYL [Concomitant]
     Active Substance: DICYCLOMINE HYDROCHLORIDE
  28. Lovonox [Concomitant]
  29. POTASSIUM CHLORIDE [Concomitant]
     Active Substance: POTASSIUM CHLORIDE
  30. CGM monitor [Concomitant]

REACTIONS (4)
  - Colitis [None]
  - Joint swelling [None]
  - Dehydration [None]
  - Weight bearing difficulty [None]

NARRATIVE: CASE EVENT DATE: 20251014
